FAERS Safety Report 6473291-3 (Version None)
Quarter: 2009Q4

REPORT INFORMATION
  Report Type: 
  Country: None (occurrence: None)
  Receive Date: 20091204
  Receipt Date: 20080826
  Transmission Date: 20100525
  Serious: Yes (Hospitalization, Other)
  Sender: FDA-Public Use
  Company Number: BE-ELI_LILLY_AND_COMPANY-BE200808002894

PATIENT
  Sex: Female

DRUGS (1)
  1. FORTEO [Suspect]
     Indication: OSTEOPOROSIS
     Dosage: 20 UG, UNKNOWN
     Route: 065
     Dates: start: 20080731

REACTIONS (5)
  - ANAEMIA [None]
  - BACK PAIN [None]
  - FAECES DISCOLOURED [None]
  - GASTRIC ULCER [None]
  - PAIN IN EXTREMITY [None]
